FAERS Safety Report 24560345 (Version 2)
Quarter: 2024Q4

REPORT INFORMATION
  Report Type: Spontaneous
  Country: FR (occurrence: FR)
  Receive Date: 20241029
  Receipt Date: 20241031
  Transmission Date: 20250114
  Serious: Yes (Hospitalization)
  Sender: MYLAN
  Company Number: None

PATIENT
  Age: 19 Year
  Sex: Female
  Weight: 59.5 kg

DRUGS (2)
  1. MIRTAZAPINE [Suspect]
     Active Substance: MIRTAZAPINE
     Indication: Product used for unknown indication
     Dosage: 60 DOSAGE FORM,1 TOTAL (15 MG X 60 TABLETS)
     Route: 048
     Dates: start: 20240925, end: 20240925
  2. VENLAFAXINE [Suspect]
     Active Substance: VENLAFAXINE HYDROCHLORIDE
     Indication: Product used for unknown indication
     Dosage: 49 DOSAGE FORM,1 TOTAL (75 MG X 49 TABLETS)
     Route: 048
     Dates: start: 20240925, end: 20240925

REACTIONS (5)
  - Hepatic cytolysis [Recovering/Resolving]
  - Poisoning deliberate [Recovered/Resolved]
  - Rhabdomyolysis [Recovering/Resolving]
  - Tachycardia [Recovered/Resolved]
  - Intentional overdose [Unknown]

NARRATIVE: CASE EVENT DATE: 20240925
